FAERS Safety Report 10277167 (Version 2)
Quarter: 2014Q3

REPORT INFORMATION
  Report Type: Spontaneous
  Country: US (occurrence: US)
  Receive Date: 20140703
  Receipt Date: 20140813
  Transmission Date: 20150326
  Serious: Yes (Hospitalization, Other)
  Sender: FDA-Public Use
  Company Number: US-TARO-2014TAR00092

PATIENT
  Age: 99 Year
  Sex: Female
  Weight: 43.84 kg

DRUGS (5)
  1. WARFARIN SODIUM TABLETS USP 2MG [Suspect]
     Active Substance: WARFARIN SODIUM
     Indication: CARDIAC FAILURE CONGESTIVE
     Dosage: 2 MG, 1X/DAY
     Route: 048
     Dates: start: 2011, end: 201401
  2. SYNTHROID [Concomitant]
     Active Substance: LEVOTHYROXINE SODIUM
     Dosage: 75 UNK, UNK
  3. ASPIRIN. [Concomitant]
     Active Substance: ASPIRIN
  4. WARFARIN SODIUM TABLETS USP 2MG [Suspect]
     Active Substance: WARFARIN SODIUM
     Indication: ARTERIAL DISORDER
  5. UNSPECIFIED BLOOD PRESSURE MEDICATION [Concomitant]
     Dosage: UNK
     Route: 048

REACTIONS (17)
  - Skin atrophy [Not Recovered/Not Resolved]
  - Laceration [Not Recovered/Not Resolved]
  - Urinary retention [Not Recovered/Not Resolved]
  - Hypernatraemia [Unknown]
  - Toxicity to various agents [Recovered/Resolved]
  - Product quality issue [None]
  - Hypotension [Unknown]
  - Dysphagia [Recovered/Resolved]
  - Atrial fibrillation [None]
  - Respiratory tract infection [None]
  - Mental status changes [Recovered/Resolved]
  - Hypothyroidism [Unknown]
  - International normalised ratio increased [Recovered/Resolved]
  - Pneumonia [Recovered/Resolved]
  - Urinary tract infection [Unknown]
  - Throat irritation [None]
  - Metabolic encephalopathy [Unknown]

NARRATIVE: CASE EVENT DATE: 201401
